FAERS Safety Report 6833900-3 (Version None)
Quarter: 2010Q3

REPORT INFORMATION
  Report Type: 
  Country: None (occurrence: None)
  Receive Date: 20100712
  Receipt Date: 20070404
  Transmission Date: 20110219
  Serious: No
  Sender: FDA-Public Use
  Company Number: US-PFIZER INC-2007028119

PATIENT
  Sex: Male

DRUGS (2)
  1. CHAMPIX [Suspect]
  2. DEPAKOTE [Suspect]
     Indication: BIPOLAR DISORDER

REACTIONS (3)
  - INSOMNIA [None]
  - LOSS OF EMPLOYMENT [None]
  - PARTNER STRESS [None]
